FAERS Safety Report 15788806 (Version 1)
Quarter: 2019Q1

REPORT INFORMATION
  Report Type: Report from Study
  Country: US (occurrence: US)
  Receive Date: 20190104
  Receipt Date: 20190104
  Transmission Date: 20190417
  Serious: Yes (Other)
  Sender: FDA-Public Use
  Company Number: US-ROCHE-2169356

PATIENT
  Sex: Female

DRUGS (4)
  1. ACTEMRA [Suspect]
     Active Substance: TOCILIZUMAB
     Indication: TEMPORAL ARTERITIS
     Dosage: ONGOING: UNKNOWN
     Route: 058
     Dates: start: 20180629
  2. PREDNISONE. [Concomitant]
     Active Substance: PREDNISONE
     Route: 065
     Dates: start: 201710, end: 201811
  3. ACTEMRA [Suspect]
     Active Substance: TOCILIZUMAB
     Indication: MYALGIA
     Dosage: ONGOING:YES
     Route: 058
     Dates: start: 201807
  4. PREDNISONE. [Concomitant]
     Active Substance: PREDNISONE
     Route: 065
     Dates: start: 2018

REACTIONS (12)
  - Vision blurred [Unknown]
  - Retinal exudates [Not Recovered/Not Resolved]
  - Peripheral swelling [Not Recovered/Not Resolved]
  - Vitreous prolapse [Not Recovered/Not Resolved]
  - Blindness unilateral [Unknown]
  - Cataract [Unknown]
  - Arthralgia [Unknown]
  - Aortic disorder [Unknown]
  - Movement disorder [Unknown]
  - Photopsia [Unknown]
  - Myalgia [Unknown]
  - Alopecia [Not Recovered/Not Resolved]
